FAERS Safety Report 4920147-0 (Version None)
Quarter: 2006Q1

REPORT INFORMATION
  Report Type: 
  Country: None (occurrence: None)
  Receive Date: 20060216
  Receipt Date: 20050304
  Transmission Date: 20060701
  Serious: Yes (Hospitalization)
  Sender: FDA-Public Use
  Company Number: DSA_26073_2005

PATIENT
  Age: 45 Year
  Sex: Female

DRUGS (5)
  1. TILDIEM [Suspect]
     Indication: AORTIC VALVE STENOSIS
     Dosage: 250 MG Q DAY, PO
     Route: 048
     Dates: start: 20041101, end: 20041201
  2. DILTIAZEM [Suspect]
     Indication: AORTIC VALVE STENOSIS
     Dosage: 120 MG DAILY, PO
     Route: 048
     Dates: start: 20041201
  3. PROPAIN [Concomitant]
  4. IBUPROFEN [Concomitant]
  5. CO-PROXAMOL [Concomitant]

REACTIONS (3)
  - ARTHRALGIA [None]
  - MUSCULOSKELETAL STIFFNESS [None]
  - PHARMACEUTICAL PRODUCT COMPLAINT [None]
